FAERS Safety Report 10072378 (Version 7)
Quarter: 2015Q3

REPORT INFORMATION
  Report Type: Spontaneous
  Country: US (occurrence: US)
  Receive Date: 20140411
  Receipt Date: 20150904
  Transmission Date: 20151125
  Serious: Yes (Hospitalization)
  Sender: FDA-Public Use
  Company Number: US-BAYER-2014-053537

PATIENT
  Age: 24 Year
  Sex: Female
  Weight: 102 kg

DRUGS (2)
  1. MIRENA [Suspect]
     Active Substance: LEVONORGESTREL
     Indication: CONTRACEPTION
  2. MIRENA [Suspect]
     Active Substance: LEVONORGESTREL
     Indication: MENORRHAGIA
     Dosage: 20 MCG/24HR, CONT
     Route: 015
     Dates: start: 20070202, end: 20070426

REACTIONS (12)
  - Device issue [Not Recovered/Not Resolved]
  - Device dislocation [Not Recovered/Not Resolved]
  - Post procedural discomfort [None]
  - Injury [Not Recovered/Not Resolved]
  - Procedural pain [None]
  - Pain [Not Recovered/Not Resolved]
  - Device dislocation [Not Recovered/Not Resolved]
  - Medical device pain [Not Recovered/Not Resolved]
  - Pelvic adhesions [None]
  - Emotional distress [None]
  - Medical device site calcification [None]
  - Uterine leiomyoma [None]

NARRATIVE: CASE EVENT DATE: 200702
